FAERS Safety Report 4264813-1 (Version None)
Quarter: 2004Q1

REPORT INFORMATION
  Report Type: 
  Country: None (occurrence: None)
  Receive Date: 20040105
  Receipt Date: 20031209
  Transmission Date: 20041129
  Serious: Yes (Death, Life-Threatening)
  Sender: FDA-Public Use
  Company Number: F01200301444

PATIENT
  Age: 76 Year
  Sex: Male

DRUGS (8)
  1. (OXALIPLATIN) - SOLUTION - 85 MG/M2 [Suspect]
     Indication: COLORECTAL CANCER
     Dosage: 85 MG/M2 AS A 2 HOURS IV INFUSION ON DAYS 1 AND 15, Q4W, INTRAVENOUS NOS
     Route: 042
     Dates: start: 20031203, end: 20031203
  2. FLUOROURACIL [Suspect]
     Dosage: SEE IMAGE
     Route: 042
     Dates: start: 20031203, end: 20031203
  3. LEUCOVORIN CALCIUM [Suspect]
     Dosage: SEE IMAGE
     Route: 042
     Dates: start: 20031203, end: 20031203
  4. AVASTIN [Suspect]
     Dosage: INTRAVENOUS NOS
     Route: 042
     Dates: start: 20031203, end: 20031203
  5. METOPROLOL [Concomitant]
  6. ACIPHEX [Concomitant]
  7. COLACE (DOCUSATE SODIUM) [Concomitant]
  8. FERROUS SULFATE TAB [Concomitant]

REACTIONS (8)
  - ATRIAL FIBRILLATION [None]
  - CARDIAC OUTPUT DECREASED [None]
  - DIALYSIS [None]
  - DIARRHOEA [None]
  - HYPOTENSION [None]
  - RENAL TUBULAR NECROSIS [None]
  - SEPTIC SHOCK [None]
  - WHITE BLOOD CELL COUNT DECREASED [None]
